FAERS Safety Report 19541526 (Version 1)
Quarter: 2021Q3

REPORT INFORMATION
  Report Type: Spontaneous
  Country: NL (occurrence: NL)
  Receive Date: 20210713
  Receipt Date: 20210713
  Transmission Date: 20211014
  Serious: Yes (Congenital Anomaly)
  Sender: FDA-Public Use
  Company Number: NL-JNJFOC-20210714509

PATIENT

DRUGS (5)
  1. HALDOL [Suspect]
     Active Substance: HALOPERIDOL
     Indication: PSYCHOTIC DISORDER
     Dosage: 1 DD 4 MG
     Route: 064
  2. METHYLFENIDAAT HCL [Suspect]
     Active Substance: METHYLPHENIDATE HYDROCHLORIDE
     Indication: ATTENTION DEFICIT HYPERACTIVITY DISORDER
     Dosage: 7 DD 10 MG
     Route: 064
  3. PREGABALINE [Suspect]
     Active Substance: PREGABALIN
     Indication: PSYCHOTIC DISORDER
     Dosage: 2 DD 150 MG
     Route: 064
  4. ZOPICLON [Suspect]
     Active Substance: ZOPICLONE
     Indication: POST-TRAUMATIC STRESS DISORDER
     Dosage: 1 DD 7.5 MG
     Route: 064
  5. PAROXETINE. [Suspect]
     Active Substance: PAROXETINE
     Indication: DEPRESSION
     Dosage: 1 DD 20 MG
     Route: 064

REACTIONS (4)
  - Spina bifida [Not Recovered/Not Resolved]
  - Foetal exposure during pregnancy [Not Recovered/Not Resolved]
  - Ectopia cordis [Not Recovered/Not Resolved]
  - Abdominal wall anomaly [Not Recovered/Not Resolved]

NARRATIVE: CASE EVENT DATE: 20210612
